FAERS Safety Report 8824571 (Version 1)
Quarter: 2012Q4

REPORT INFORMATION
  Report Type: 
  Country: GR (occurrence: GR)
  Receive Date: 20121004
  Receipt Date: 20121004
  Transmission Date: 20130627
  Serious: Yes (Other)
  Sender: FDA-Public Use
  Company Number: GR-009507513-1210GRC001375

PATIENT
  Age: 64 Year
  Sex: Male
  Weight: 92 kg

DRUGS (6)
  1. JANUMET [Suspect]
     Indication: DIABETES MELLITUS
     Dosage: 100/2000 mg
     Route: 048
     Dates: start: 20120711
  2. LANTUS [Concomitant]
     Indication: DIABETES MELLITUS
     Dosage: 40 IU, bid
     Route: 058
     Dates: start: 20120401
  3. TENORMIN [Concomitant]
     Indication: HYPERTENSION
     Dosage: 50 mg, qd
     Route: 048
     Dates: start: 2005
  4. APROVEL [Concomitant]
     Indication: HYPERTENSION
     Dosage: 300 mg, qd
     Route: 048
     Dates: start: 2005
  5. INEGY [Concomitant]
     Indication: DYSLIPIDAEMIA
     Dosage: 10mg/10mg, qd
     Route: 048
     Dates: start: 2005
  6. OMACOR [Concomitant]
     Indication: DYSLIPIDAEMIA
     Dosage: 2000 mg, qd
     Route: 048
     Dates: start: 20120401

REACTIONS (2)
  - Dermatitis allergic [Recovering/Resolving]
  - Abdominal discomfort [Recovering/Resolving]
